FAERS Safety Report 9017024 (Version 3)
Quarter: 2013Q4

REPORT INFORMATION
  Report Type: Spontaneous
  Country: US (occurrence: US)
  Receive Date: 20130117
  Receipt Date: 20131101
  Transmission Date: 20140711
  Serious: Yes (Other)
  Sender: FDA-Public Use
  Company Number: US-CELGENEUS-163-21880-12041583

PATIENT
  Age: 72 Year
  Sex: Female
  Weight: 104.42 kg

DRUGS (7)
  1. REVLIMID [Suspect]
     Indication: PLASMA CELL MYELOMA
     Dosage: 25 MILLIGRAM
     Route: 048
     Dates: start: 20100125, end: 20101005
  2. REVLIMID [Suspect]
     Dosage: 10 MILLIGRAM
     Route: 048
     Dates: start: 20101005, end: 20120327
  3. REVLIMID [Suspect]
     Dosage: 10 MILLIGRAM
     Route: 048
     Dates: start: 20120424, end: 20120913
  4. PRBC [Concomitant]
     Indication: PRODUCT USED FOR UNKNOWN INDICATION
     Dosage: 2 UNITS
     Route: 065
  5. DEXAMETHASONE [Concomitant]
     Indication: PRODUCT USED FOR UNKNOWN INDICATION
     Route: 048
  6. KYPROLIS [Concomitant]
     Indication: PLASMA CELL MYELOMA RECURRENT
     Route: 065
     Dates: start: 20121031
  7. FORMALIN [Concomitant]
     Indication: THROMBOSIS
     Route: 065
     Dates: start: 20121017

REACTIONS (3)
  - Refractory cytopenia with multilineage dysplasia [Not Recovered/Not Resolved]
  - Leukopenia [Recovering/Resolving]
  - Plasma cell myeloma recurrent [Recovering/Resolving]
